FAERS Safety Report 15021781 (Version 1)
Quarter: 2018Q2

REPORT INFORMATION
  Report Type: Spontaneous
  Country: IT (occurrence: IT)
  Receive Date: 20180618
  Receipt Date: 20180618
  Transmission Date: 20180711
  Serious: Yes (Other)
  Sender: FDA-Public Use
  Company Number: IT-GLAXOSMITHKLINE-IT2018102651

PATIENT
  Age: 80 Year
  Sex: Female

DRUGS (10)
  1. CLENIL [Suspect]
     Active Substance: BECLOMETHASONE DIPROPIONATE
     Indication: PNEUMONIA
     Dosage: 1 DF, UNK
     Route: 055
     Dates: start: 20180423, end: 20180423
  2. BRONCOVALEAS [Suspect]
     Active Substance: ALBUTEROL
     Indication: PNEUMONIA
     Dosage: 8 GTT, UNK
     Route: 055
     Dates: start: 20180423, end: 20180423
  3. MEDROL [Suspect]
     Active Substance: METHYLPREDNISOLONE
     Indication: PNEUMONIA
     Dosage: 1 DF, QD
     Route: 048
     Dates: start: 20180421, end: 20180423
  4. CARDIRENE [Concomitant]
     Active Substance: ASPIRIN DL-LYSINE
     Indication: PRODUCT USED FOR UNKNOWN INDICATION
     Dosage: UNK
     Route: 065
  5. FLEIDERINA [Concomitant]
     Indication: PRODUCT USED FOR UNKNOWN INDICATION
     Dosage: UNK
     Route: 065
  6. COVERLAM [Concomitant]
     Active Substance: AMLODIPINE BESYLATE\PERINDOPRIL ARGININE
     Indication: PRODUCT USED FOR UNKNOWN INDICATION
     Route: 065
  7. FOSTER [Concomitant]
     Active Substance: BECLOMETHASONE\FORMOTEROL
     Indication: PRODUCT USED FOR UNKNOWN INDICATION
     Dosage: UNK
     Route: 065
  8. AUGMENTIN [Suspect]
     Active Substance: AMOXICILLIN\CLAVULANATE POTASSIUM
     Indication: PNEUMONIA
     Dosage: 2 DF, QD
     Route: 048
     Dates: start: 20180421, end: 20180423
  9. TACHIPIRINA [Suspect]
     Active Substance: ACETAMINOPHEN
     Indication: PNEUMONIA
     Dosage: 1 DF, UNK
     Route: 048
     Dates: start: 20180421, end: 20180423
  10. LANSOX [Concomitant]
     Active Substance: LANSOPRAZOLE
     Indication: PRODUCT USED FOR UNKNOWN INDICATION
     Dosage: UNK
     Route: 065

REACTIONS (3)
  - Hyperhidrosis [Recovering/Resolving]
  - Syncope [Recovering/Resolving]
  - Hypotension [Recovering/Resolving]

NARRATIVE: CASE EVENT DATE: 20180423
